FAERS Safety Report 21577763 (Version 1)
Quarter: 2022Q4

REPORT INFORMATION
  Report Type: Spontaneous
  Country: US (occurrence: None)
  Receive Date: 20221109
  Receipt Date: 20221109
  Transmission Date: 20230112
  Serious: Yes (Other)
  Sender: FDA-Public Use
  Company Number: None

PATIENT
  Age: 45 Year
  Sex: Female
  Weight: 58.05 kg

DRUGS (5)
  1. LAMOTRIGINE [Suspect]
     Active Substance: LAMOTRIGINE
     Indication: Mood swings
     Dosage: OTHER QUANTITY : 3 TABLET(S);?FREQUENCY : AT BEDTIME;?
     Route: 048
     Dates: start: 20220824, end: 20220901
  2. LAMOTRIGINE [Concomitant]
     Active Substance: LAMOTRIGINE
  3. REMERON [Concomitant]
     Active Substance: MIRTAZAPINE
  4. LEXAPRO [Concomitant]
     Active Substance: ESCITALOPRAM OXALATE
  5. LYRICA [Concomitant]
     Active Substance: PREGABALIN

REACTIONS (5)
  - Product substitution issue [None]
  - Affective disorder [None]
  - Disease recurrence [None]
  - Suicidal ideation [None]
  - Intentional self-injury [None]

NARRATIVE: CASE EVENT DATE: 20220824
